FAERS Safety Report 22108559 (Version 1)
Quarter: 2023Q1

REPORT INFORMATION
  Report Type: Spontaneous
  Country: US (occurrence: US)
  Receive Date: 20230317
  Receipt Date: 20230317
  Transmission Date: 20230418
  Serious: No
  Sender: FDA-Public Use
  Company Number: US-GSK-US2023AMR036435

PATIENT
  Sex: Male

DRUGS (1)
  1. NUCALA [Suspect]
     Active Substance: MEPOLIZUMAB
     Indication: Asthma
     Dosage: 100 MG, Z (1 SHOT, 100 MG, EVERY 4 WEEKS)
     Dates: start: 2018

REACTIONS (2)
  - Injection site pain [Recovered/Resolved]
  - Product administration error [Unknown]
